FAERS Safety Report 9402799 (Version 1)
Quarter: 2013Q3

REPORT INFORMATION
  Report Type: Spontaneous
  Country: GB (occurrence: GB)
  Receive Date: 20130716
  Receipt Date: 20130716
  Transmission Date: 20140515
  Serious: Yes (Other)
  Sender: FDA-Public Use
  Company Number: GB-TEVA-417109ISR

PATIENT
  Age: 60 Year
  Sex: Female

DRUGS (3)
  1. TRAMADOL [Suspect]
     Indication: PAIN
     Dosage: 50 OR 100MG, UP TO FOUR TIMES A DAY, AS NEEDED
     Route: 048
     Dates: start: 20130618
  2. TRAMADOL [Suspect]
     Dosage: 50 OR 100MG, UP TO FOUR TIMES A DAY, AS NEEDED
     Route: 048
     Dates: start: 20130618
  3. CO-CODAMOL [Concomitant]

REACTIONS (3)
  - Convulsion [Recovered/Resolved]
  - Somnolence [Recovered/Resolved]
  - Loss of consciousness [Recovered/Resolved]
